FAERS Safety Report 9079362 (Version 1)
Quarter: 2013Q1

REPORT INFORMATION
  Report Type: Report from Study
  Country: US (occurrence: US)
  Receive Date: 20130130
  Receipt Date: 20130130
  Transmission Date: 20140127
  Serious: Yes (Other)
  Sender: FDA-Public Use
  Company Number: US-ABBOTT-12P-163-0955348-00

PATIENT
  Age: 42 None
  Sex: Female
  Weight: 74.91 kg

DRUGS (10)
  1. HUMIRA 40 MG/0.8 ML PEN [Suspect]
     Indication: RHEUMATOID ARTHRITIS
     Route: 058
     Dates: start: 2012
  2. METHOTREXATE [Concomitant]
     Indication: PRODUCT USED FOR UNKNOWN INDICATION
     Dosage: 5 PILLS PER DAY
  3. DICLOFENAC [Concomitant]
     Indication: PRODUCT USED FOR UNKNOWN INDICATION
  4. UROSEMIDE [Concomitant]
     Indication: PRODUCT USED FOR UNKNOWN INDICATION
     Dosage: 20 MG ONCE DAILY AS NEEDED
  5. KLONOPIN [Concomitant]
     Indication: PRODUCT USED FOR UNKNOWN INDICATION
     Dosage: 0.5 MG BID, AS NEEDED
  6. LYRICA [Concomitant]
     Indication: FIBROMYALGIA
  7. OXYCODONE [Concomitant]
     Indication: PAIN
     Dosage: EVERY 6 HOURS AS NEEDED
  8. MTV [Concomitant]
     Indication: PRODUCT USED FOR UNKNOWN INDICATION
  9. VIT D [Concomitant]
     Indication: PRODUCT USED FOR UNKNOWN INDICATION
     Dosage: 1000 IU/WEEK
  10. TRAMADOL [Concomitant]
     Indication: PRODUCT USED FOR UNKNOWN INDICATION
     Dosage: 300MG/DAY

REACTIONS (8)
  - Cystitis interstitial [Recovering/Resolving]
  - Dysuria [Recovering/Resolving]
  - Haemorrhoids [Not Recovered/Not Resolved]
  - Nephrolithiasis [Recovered/Resolved]
  - Back pain [Recovered/Resolved]
  - Vomiting [Recovered/Resolved]
  - Urethral pain [Not Recovered/Not Resolved]
  - Fatigue [Not Recovered/Not Resolved]
